FAERS Safety Report 5279445-6 (Version None)
Quarter: 2007Q1

REPORT INFORMATION
  Report Type: 
  Country: None (occurrence: None)
  Receive Date: 20070328
  Receipt Date: 20070313
  Transmission Date: 20070707
  Serious: Yes (Other)
  Sender: FDA-Public Use
  Company Number: US-SHR-US-2006-040478

PATIENT
  Age: 44 Year
  Sex: Female
  Weight: 70.748 kg

DRUGS (13)
  1. BETASERON [Suspect]
     Indication: RELAPSING-REMITTING MULTIPLE SCLEROSIS
     Dosage: 4 MIU, EVERY 2D
     Route: 058
     Dates: start: 20061118
  2. XANAX [Concomitant]
     Dosage: 5 A?G, AS REQ'D
     Route: 048
  3. PAXIL [Concomitant]
     Dosage: 40 MG/D, UNK
     Route: 048
  4. PAXIL [Concomitant]
     Dosage: 20 MG/D, UNK
  5. PREVACID [Concomitant]
     Dosage: 30 MG, UNK
     Route: 048
  6. ELEVAL [Concomitant]
     Dosage: 25 A?G, AS REQ'D
     Route: 048
  7. ZYRTEC [Concomitant]
     Dosage: 10 MG, UNK
  8. ZYRTEC [Concomitant]
     Dosage: UNK, 2X/DAY
  9. AMITRIPTYLINE HCL [Concomitant]
  10. MOBIC [Concomitant]
     Dosage: 7.5 A?G, 2X/DAY
  11. PREMARIN [Concomitant]
     Dosage: UNK, 1X/DAY
  12. PREVACID [Concomitant]
     Dosage: 20 MG/D, UNK
  13. VICODIN [Concomitant]
     Dosage: UNK, AS REQ'D

REACTIONS (2)
  - INFLUENZA [None]
  - SYNCOPE [None]
